FAERS Safety Report 8030146-0 (Version None)
Quarter: 2012Q1

REPORT INFORMATION
  Report Type: 
  Country: None (occurrence: None)
  Receive Date: 20120109
  Receipt Date: 20111231
  Transmission Date: 20120608
  Serious: Yes (Other)
  Sender: FDA-Public Use
  Company Number: US-BAYER-2011-093988

PATIENT
  Age: 31 Year
  Sex: Female

DRUGS (7)
  1. YAZ [Suspect]
     Indication: ACNE
     Dosage: UNK
     Route: 048
     Dates: start: 20081001, end: 20091101
  2. TREXIMET [Concomitant]
     Indication: MIGRAINE
     Dosage: UNK
     Dates: start: 20091009
  3. VITAMIN B-12 [Concomitant]
     Indication: MEDICAL DIET
     Dosage: UNK
     Dates: start: 20040101
  4. PRISTIQ [Concomitant]
     Dosage: UNK
     Dates: start: 20091009
  5. NAPROXEN [Concomitant]
     Dosage: UNK
     Dates: start: 20091009
  6. MULTI-VITAMINS [Concomitant]
     Indication: MEDICAL DIET
     Dosage: UNK
     Dates: start: 20040101
  7. IBUPROFEN (ADVIL) [Concomitant]
     Dosage: UNK
     Dates: start: 20091009

REACTIONS (5)
  - PAIN [None]
  - GALLBLADDER DISORDER [None]
  - GALLBLADDER CHOLESTEROLOSIS [None]
  - INJURY [None]
  - BILIARY DYSKINESIA [None]
